FAERS Safety Report 21635064 (Version 1)
Quarter: 2022Q4

REPORT INFORMATION
  Report Type: Spontaneous
  Country: CN (occurrence: CN)
  Receive Date: 20221123
  Receipt Date: 20221123
  Transmission Date: 20230113
  Serious: Yes (Other)
  Sender: FDA-Public Use
  Company Number: CN-PFIZER INC-PV202200108299

PATIENT
  Age: 36 Year
  Sex: Female
  Weight: 59 kg

DRUGS (8)
  1. METHYLPREDNISOLONE SODIUM SUCCINATE [Suspect]
     Active Substance: METHYLPREDNISOLONE SODIUM SUCCINATE
     Indication: Optic neuritis
     Dosage: 1.000 G, 1X/DAY
     Route: 041
     Dates: start: 20221015, end: 20221017
  2. METHYLPREDNISOLONE SODIUM SUCCINATE [Suspect]
     Active Substance: METHYLPREDNISOLONE SODIUM SUCCINATE
     Dosage: 0.500G, 1X/DAY
     Route: 041
     Dates: start: 20221018, end: 20221020
  3. METHYLPREDNISOLONE SODIUM SUCCINATE [Suspect]
     Active Substance: METHYLPREDNISOLONE SODIUM SUCCINATE
     Dosage: 0.250 G, 1X/DAY
     Route: 041
     Dates: start: 20221021, end: 20221023
  4. METHYLPREDNISOLONE SODIUM SUCCINATE [Suspect]
     Active Substance: METHYLPREDNISOLONE SODIUM SUCCINATE
     Dosage: 0.125 G, 1X/DAY
     Route: 041
     Dates: start: 20221024, end: 20221026
  5. SODIUM CHLORIDE [Concomitant]
     Active Substance: SODIUM CHLORIDE
     Indication: Vehicle solution use
     Dosage: 250.000 ML, 1X/DAY
     Route: 041
     Dates: start: 20221015, end: 20221020
  6. POTASSIUM CHLORIDE [Concomitant]
     Active Substance: POTASSIUM CHLORIDE
     Indication: Hypokalaemia
     Dosage: 0.500 G, 1X/DAY
     Route: 048
     Dates: start: 20221015, end: 20221020
  7. POTASSIUM CHLORIDE [Concomitant]
     Active Substance: POTASSIUM CHLORIDE
     Dosage: 0.500 G, 3X/DAY
     Route: 048
     Dates: start: 20221021, end: 20221026
  8. DEXTROSE [Concomitant]
     Active Substance: DEXTROSE
     Indication: Vehicle solution use
     Dosage: 250.000 ML, 1X/DAY
     Route: 041
     Dates: start: 20221021, end: 20221026

REACTIONS (1)
  - Hypokalaemia [Recovered/Resolved]

NARRATIVE: CASE EVENT DATE: 20221021
